FAERS Safety Report 25491127 (Version 2)
Quarter: 2025Q3

REPORT INFORMATION
  Report Type: Spontaneous
  Country: US (occurrence: US)
  Receive Date: 20250629
  Receipt Date: 20250704
  Transmission Date: 20251021
  Serious: No
  Sender: ROCHE
  Company Number: US-ROCHE-10000320805

PATIENT
  Sex: Female
  Weight: 68.04 kg

DRUGS (2)
  1. OCREVUS [Suspect]
     Active Substance: OCRELIZUMAB
     Indication: Relapsing-remitting multiple sclerosis
     Route: 042
     Dates: start: 202404
  2. OCREVUS [Suspect]
     Active Substance: OCRELIZUMAB
     Route: 065

REACTIONS (4)
  - Off label use [Unknown]
  - Multiple sclerosis [Unknown]
  - Multiple sclerosis relapse [Unknown]
  - Pain [Unknown]
